FAERS Safety Report 12528492 (Version 1)
Quarter: 2016Q3

REPORT INFORMATION
  Report Type: Spontaneous
  Country: US (occurrence: US)
  Receive Date: 20160705
  Receipt Date: 20160705
  Transmission Date: 20161109
  Serious: No
  Sender: FDA-Public Use
  Company Number: US-ELI_LILLY_AND_COMPANY-US201606007069

PATIENT

DRUGS (1)
  1. HUMATROPE [Suspect]
     Active Substance: SOMATROPIN
     Indication: GROWTH HORMONE DEFICIENCY
     Dosage: 0.6 MG, 6/W
     Route: 065
     Dates: start: 20120714

REACTIONS (11)
  - Dyspepsia [Unknown]
  - Asthenia [Unknown]
  - Muscle atrophy [Unknown]
  - Drug dose omission [Unknown]
  - Anxiety [Unknown]
  - Depression [Unknown]
  - Somnolence [Unknown]
  - Libido decreased [Unknown]
  - Weight increased [Unknown]
  - Fatigue [Unknown]
  - Back pain [Unknown]
